FAERS Safety Report 9223271 (Version 2)
Quarter: 2013Q2

REPORT INFORMATION
  Report Type: Report from Study
  Country: BE (occurrence: BE)
  Receive Date: 20130410
  Receipt Date: 20130520
  Transmission Date: 20140414
  Serious: Yes (Life-Threatening)
  Sender: FDA-Public Use
  Company Number: BE-GENZYME-CLOF-1002581

PATIENT
  Age: 65 Year
  Sex: Female
  Weight: 56 kg

DRUGS (8)
  1. EVOLTRA [Suspect]
     Indication: ACUTE MYELOID LEUKAEMIA
     Dosage: 16 MG, UNK
     Route: 042
     Dates: start: 20130311
  2. CYTARABINE [Suspect]
     Indication: ACUTE MYELOID LEUKAEMIA
     Dosage: 3200 MG, UNK
     Route: 042
     Dates: start: 20130311
  3. AMSACRINE [Suspect]
     Indication: ACUTE MYELOID LEUKAEMIA
     Dosage: 192 MG, UNK
     Route: 042
     Dates: start: 20130314
  4. PEGFILGRASTIM [Concomitant]
     Indication: PROPHYLAXIS
     Dosage: 1 VIAL, QD
     Route: 058
     Dates: start: 20130320
  5. POSACONAZOLE [Concomitant]
     Indication: PROPHYLAXIS
     Dosage: 5 ML, QD
     Route: 048
     Dates: start: 20130317
  6. ACICLOVIR [Concomitant]
     Indication: PROPHYLAXIS
     Dosage: 400 MG, BID
     Route: 048
     Dates: start: 20130206
  7. CLOXAZOLAM [Concomitant]
     Indication: ANXIETY
     Dosage: 1 MG, QD
     Route: 048
     Dates: start: 20130205
  8. ESOMEPRAZOLE [Concomitant]
     Indication: PROPHYLAXIS
     Dosage: 20 MG, QD
     Route: 048
     Dates: start: 20130208

REACTIONS (1)
  - Enterocolitis [Recovered/Resolved]
